FAERS Safety Report 6694877-7 (Version None)
Quarter: 2010Q2

REPORT INFORMATION
  Report Type: 
  Country: None (occurrence: None)
  Receive Date: 20100423
  Receipt Date: 20100322
  Transmission Date: 20101027
  Serious: Yes (Hospitalization, Other)
  Sender: FDA-Public Use
  Company Number: US-BAXTER-2008BH010979

PATIENT
  Age: 59 Year
  Sex: Male
  Weight: 71 kg

DRUGS (33)
  1. HEPARIN SODIUM INJECTION [Suspect]
     Indication: PULMONARY EMBOLISM
     Route: 040
     Dates: start: 20071226, end: 20071226
  2. HEPARIN SODIUM INJECTION [Suspect]
     Indication: INTRAVENOUS CATHETER MANAGEMENT
     Route: 040
     Dates: start: 20071226, end: 20071226
  3. HEPARIN SODIUM INJECTION [Suspect]
     Route: 040
     Dates: start: 20071227, end: 20071227
  4. HEPARIN SODIUM INJECTION [Suspect]
     Route: 040
     Dates: start: 20071227, end: 20071227
  5. HEPARIN SODIUM INJECTION [Suspect]
     Route: 042
     Dates: start: 20071226, end: 20071226
  6. HEPARIN SODIUM INJECTION [Suspect]
     Route: 042
     Dates: start: 20071226, end: 20071226
  7. HEPARIN SODIUM INJECTION [Suspect]
     Route: 040
     Dates: start: 20080105, end: 20080203
  8. HEPARIN SODIUM INJECTION [Suspect]
     Route: 040
     Dates: start: 20080105, end: 20080203
  9. HEPARIN SODIUM INJECTION [Suspect]
     Route: 042
     Dates: start: 20071228, end: 20071231
  10. HEPARIN SODIUM INJECTION [Suspect]
     Route: 042
     Dates: start: 20071228, end: 20071231
  11. HEPARIN SODIUM INJECTION [Suspect]
     Route: 040
     Dates: start: 20080403, end: 20080403
  12. HEPARIN SODIUM INJECTION [Suspect]
     Route: 040
     Dates: start: 20080403, end: 20080403
  13. HEPARIN SODIUM INJECTION [Suspect]
     Route: 042
     Dates: start: 20080102, end: 20080105
  14. HEPARIN SODIUM INJECTION [Suspect]
     Route: 042
     Dates: start: 20080102, end: 20080105
  15. HEPARIN SODIUM INJECTION [Suspect]
     Route: 040
     Dates: start: 20080404, end: 20080405
  16. HEPARIN SODIUM INJECTION [Suspect]
     Route: 040
     Dates: start: 20080404, end: 20080405
  17. HEPARIN SODIUM INJECTION [Suspect]
     Route: 042
     Dates: start: 20080105, end: 20080130
  18. HEPARIN SODIUM INJECTION [Suspect]
     Route: 042
     Dates: start: 20080105, end: 20080130
  19. HEPARIN SODIUM 1,000 UNITS AND SODIUM CHLORIDE 0.9% [Suspect]
     Indication: PULMONARY EMBOLISM
     Route: 042
     Dates: start: 20071226, end: 20080101
  20. HEPARIN SODIUM 1,000 UNITS AND SODIUM CHLORIDE 0.9% [Suspect]
     Indication: ATRIAL FIBRILLATION
     Route: 042
     Dates: start: 20071226, end: 20080101
  21. HEPARIN SODIUM 1,000 UNITS AND SODIUM CHLORIDE 0.9% [Suspect]
     Route: 042
     Dates: start: 20080403, end: 20080401
  22. HEPARIN SODIUM 1,000 UNITS AND SODIUM CHLORIDE 0.9% [Suspect]
     Route: 042
     Dates: start: 20080403, end: 20080401
  23. HEPARIN SODIUM 5,000 UNITS IN DEXTROSE 5% [Suspect]
     Indication: DRUG USE FOR UNKNOWN INDICATION
     Route: 042
     Dates: start: 20080421, end: 20080422
  24. HEPARIN SODIUM INJECTION [Suspect]
     Indication: DRUG USE FOR UNKNOWN INDICATION
     Route: 042
     Dates: start: 20080105, end: 20080130
  25. ZOLOFT [Concomitant]
     Indication: DRUG USE FOR UNKNOWN INDICATION
  26. LACTOBACILLUS ACIDOPHILUS [Concomitant]
     Indication: DRUG USE FOR UNKNOWN INDICATION
  27. ASPIRIN [Concomitant]
     Indication: DRUG USE FOR UNKNOWN INDICATION
  28. VANCOMYCIN [Concomitant]
     Indication: DRUG USE FOR UNKNOWN INDICATION
     Route: 042
  29. WARFARIN SODIUM [Concomitant]
     Indication: DRUG USE FOR UNKNOWN INDICATION
  30. TYLENOL-500 [Concomitant]
     Indication: DRUG USE FOR UNKNOWN INDICATION
  31. LIPITOR [Concomitant]
     Indication: DRUG USE FOR UNKNOWN INDICATION
  32. NEXIUM                                  /UNK/ [Concomitant]
     Indication: DRUG USE FOR UNKNOWN INDICATION
  33. COREG [Concomitant]
     Indication: DRUG USE FOR UNKNOWN INDICATION

REACTIONS (20)
  - ABDOMINAL PAIN [None]
  - ATRIAL FIBRILLATION [None]
  - CARDIAC PERFORATION [None]
  - CHEST PAIN [None]
  - CHILLS [None]
  - CORONARY ARTERY THROMBOSIS [None]
  - DIZZINESS [None]
  - DYSPNOEA [None]
  - FATIGUE [None]
  - FEELING ABNORMAL [None]
  - MEMORY IMPAIRMENT [None]
  - NIGHT SWEATS [None]
  - OEDEMA PERIPHERAL [None]
  - PAIN [None]
  - PALPITATIONS [None]
  - PERICARDIAL EFFUSION [None]
  - PLEURAL EFFUSION [None]
  - PYREXIA [None]
  - STAPHYLOCOCCAL INFECTION [None]
  - TREMOR [None]
